FAERS Safety Report 5301912-7 (Version None)
Quarter: 2007Q2

REPORT INFORMATION
  Report Type: 
  Country: None (occurrence: None)
  Receive Date: 20070419
  Receipt Date: 20070409
  Transmission Date: 20071010
  Serious: Yes (Other)
  Sender: FDA-Public Use
  Company Number: PHBS2007BR06232

PATIENT
  Age: 61 Year
  Sex: Male
  Weight: 62 kg

DRUGS (5)
  1. BEROTEC [Concomitant]
     Dosage: 8 DROPS/DAY
  2. ATROVENT [Concomitant]
     Dosage: 16 DROPS/DAY
  3. SALBUTAMOL [Concomitant]
     Indication: BRONCHITIS
     Dosage: 100 ML, QID
     Route: 048
  4. FORADIL [Suspect]
     Indication: ALLERGIC BRONCHITIS
     Dosage: 1 DF, Q12H
     Dates: start: 20070407, end: 20070408
  5. TALOFILINA [Suspect]
     Indication: ALLERGIC BRONCHITIS
     Dates: start: 20070222

REACTIONS (12)
  - BACK PAIN [None]
  - DRUG INEFFECTIVE [None]
  - FATIGUE [None]
  - HEADACHE [None]
  - INSOMNIA [None]
  - MUSCLE SPASMS [None]
  - PRURITUS [None]
  - RASH MACULAR [None]
  - RENAL COLIC [None]
  - RENAL PAIN [None]
  - THROAT IRRITATION [None]
  - WHEEZING [None]
